FAERS Safety Report 23056113 (Version 1)
Quarter: 2023Q4

REPORT INFORMATION
  Report Type: Other
  Country: None (occurrence: AU)
  Receive Date: 20231011
  Receipt Date: 20231011
  Transmission Date: 20240110
  Serious: Yes (Life-Threatening, Hospitalization)
  Sender: FDA-Public Use
  Company Number: AU-B.Braun Medical Inc.-2146947

PATIENT
  Age: 33 Year
  Sex: Female

DRUGS (6)
  1. METRONIDAZOLE [Suspect]
     Active Substance: METRONIDAZOLE
     Indication: Appendicectomy
  2. AMOXICILLIN [Suspect]
     Active Substance: AMOXICILLIN
  3. GENTAMICIN [Suspect]
     Active Substance: GENTAMICIN
  4. CEPHALEXIN [Suspect]
     Active Substance: CEPHALEXIN
  5. CIPROFLOXACIN [Suspect]
     Active Substance: CIPROFLOXACIN
  6. UNSPECIFIED INGREDIENT [Suspect]
     Active Substance: UNSPECIFIED INGREDIENT

REACTIONS (3)
  - Acute kidney injury [None]
  - Renal transplant [None]
  - Gastroenteritis [None]
